FAERS Safety Report 18694589 (Version 3)
Quarter: 2021Q1

REPORT INFORMATION
  Report Type: Spontaneous
  Country: US (occurrence: US)
  Receive Date: 20210104
  Receipt Date: 20210311
  Transmission Date: 20210419
  Serious: Yes (Other)
  Sender: FDA-Public Use
  Company Number: US-PFIZER INC-2020517500

PATIENT
  Age: 95 Year
  Sex: Female

DRUGS (1)
  1. ESTRING [Suspect]
     Active Substance: ESTRADIOL
     Indication: URINARY TRACT INFECTION
     Dosage: UNK

REACTIONS (4)
  - Off label use [Unknown]
  - Blindness [Unknown]
  - Drug effective for unapproved indication [Unknown]
  - Gait inability [Unknown]
